FAERS Safety Report 9769529 (Version 2)
Quarter: 2013Q4

REPORT INFORMATION
  Report Type: Spontaneous
  Country: US (occurrence: US)
  Receive Date: 20131218
  Receipt Date: 20131218
  Transmission Date: 20140711
  Serious: No
  Sender: FDA-Public Use
  Company Number: US-SHIONOGI, INC-2013000306

PATIENT
  Sex: Female

DRUGS (1)
  1. OSPHENA [Suspect]
     Indication: PRODUCT USED FOR UNKNOWN INDICATION
     Dosage: UNK
     Route: 065
     Dates: start: 201309, end: 201310

REACTIONS (4)
  - Pollakiuria [Unknown]
  - Anxiety [Unknown]
  - Vulvovaginal pruritus [Recovering/Resolving]
  - Vaginal discharge [Recovering/Resolving]
